FAERS Safety Report 15186909 (Version 1)
Quarter: 2018Q3

REPORT INFORMATION
  Report Type: Report from Study
  Country: US (occurrence: US)
  Receive Date: 20180723
  Receipt Date: 20180723
  Transmission Date: 20181010
  Serious: No
  Sender: FDA-Public Use
  Company Number: US-EXELIXIS-CABO-18013078

PATIENT
  Sex: Male

DRUGS (1)
  1. CABOMETYX [Suspect]
     Active Substance: CABOZANTINIB S-MALATE
     Indication: RENAL CANCER
     Dosage: 60 MG, QD
     Route: 048
     Dates: start: 20180228

REACTIONS (6)
  - Back pain [Unknown]
  - Diarrhoea [Unknown]
  - Dry mouth [Unknown]
  - Dysgeusia [Unknown]
  - Nausea [Unknown]
  - Constipation [Unknown]
